FAERS Safety Report 23254442 (Version 1)
Quarter: 2023Q4

REPORT INFORMATION
  Report Type: Report from Study
  Country: ES (occurrence: ES)
  Receive Date: 20231202
  Receipt Date: 20231202
  Transmission Date: 20240110
  Serious: Yes (Hospitalization)
  Sender: FDA-Public Use
  Company Number: ES-AMGEN-ESPCT2023210778

PATIENT
  Age: 76 Year
  Sex: Male
  Weight: 66 kg

DRUGS (12)
  1. PANITUMUMAB [Suspect]
     Active Substance: PANITUMUMAB
     Indication: Colorectal cancer metastatic
     Dosage: 396 MILLIGRAM, Q2WK
     Route: 042
     Dates: start: 20231018
  2. BEVACIZUMAB [Suspect]
     Active Substance: BEVACIZUMAB
     Indication: Colorectal cancer metastatic
     Dosage: 325 MILLIGRAM, Q2WK
     Route: 042
     Dates: start: 20220518, end: 20230918
  3. OXALIPLATIN [Suspect]
     Active Substance: OXALIPLATIN
     Indication: Colorectal cancer metastatic
     Dosage: 148.41 MILLIGRAM, Q2WK
     Route: 042
     Dates: start: 20220518, end: 20220914
  4. LEUCOVORIN [Suspect]
     Active Substance: LEUCOVORIN\LEUCOVORIN CALCIUM
     Indication: Colorectal cancer metastatic
     Dosage: 698.4 MILLIGRAM, Q2WK
     Route: 042
     Dates: start: 20220518, end: 20230918
  5. LEUCOVORIN [Suspect]
     Active Substance: LEUCOVORIN\LEUCOVORIN CALCIUM
     Dosage: 702.80 MILLIGRAM, Q2WK
     Route: 042
     Dates: start: 20231018
  6. FLUOROURACIL [Suspect]
     Active Substance: FLUOROURACIL
     Indication: Colorectal cancer metastatic
     Dosage: 698.4 MILLIGRAM, Q2WK/ IV BOLUS
     Route: 042
     Dates: start: 20220518
  7. FLUOROURACIL [Suspect]
     Active Substance: FLUOROURACIL
     Dosage: 558.72 MILLIGRAM, Q2WK/ IV BOLUS
     Route: 042
     Dates: end: 20230918
  8. FLUOROURACIL [Suspect]
     Active Substance: FLUOROURACIL
     Dosage: 4190.4 MILLIGRAM, Q2WK/ IV DRIP
     Route: 042
     Dates: start: 20220518
  9. FLUOROURACIL [Suspect]
     Active Substance: FLUOROURACIL
     Dosage: 3492 MILLIGRAM, Q2WK/ IV DRIP
     Route: 042
     Dates: end: 20230918
  10. FLUOROURACIL [Suspect]
     Active Substance: FLUOROURACIL
     Dosage: 4216.80 MILLIGRAM, Q2WK/ IV DRIP
     Route: 042
     Dates: start: 20231018
  11. FLUOROURACIL [Suspect]
     Active Substance: FLUOROURACIL
     Dosage: 702.80 MILLIGRAM, Q2WK/ IV BOLUS
     Route: 042
     Dates: start: 20231018
  12. IRINOTECAN [Suspect]
     Active Substance: IRINOTECAN
     Indication: Colorectal cancer metastatic
     Dosage: 316.26 MILLIGRAM, Q2WK
     Route: 042
     Dates: start: 20231018

REACTIONS (1)
  - Neutropenia [Recovered/Resolved]

NARRATIVE: CASE EVENT DATE: 20231103
